FAERS Safety Report 9736030 (Version 1)
Quarter: 2013Q4

REPORT INFORMATION
  Report Type: Spontaneous
  Country: US (occurrence: None)
  Receive Date: 20131205
  Receipt Date: 20131205
  Transmission Date: 20140711
  Serious: Yes (Hospitalization)
  Sender: FDA-Public Use
  Company Number: None

PATIENT
  Age: 67 Year
  Sex: Female
  Weight: 65.4 kg

DRUGS (1)
  1. PLACITACXEL [Suspect]

REACTIONS (17)
  - Pneumonia [None]
  - Pleural effusion [None]
  - Cardiomegaly [None]
  - Cardio-respiratory arrest [None]
  - Chills [None]
  - Dyspnoea [None]
  - Tachycardia [None]
  - Interstitial lung disease [None]
  - Alveolar proteinosis [None]
  - Pneumonia [None]
  - Organising pneumonia [None]
  - Lung consolidation [None]
  - Blood glucose decreased [None]
  - Aspartate aminotransferase increased [None]
  - Myocardial infarction [None]
  - Pyrexia [None]
  - Blood potassium increased [None]
